FAERS Safety Report 6431050-1 (Version None)
Quarter: 2009Q4

REPORT INFORMATION
  Report Type: 
  Country: None (occurrence: None)
  Receive Date: 20091106
  Receipt Date: 20091028
  Transmission Date: 20100525
  Serious: Yes (Other)
  Sender: FDA-Public Use
  Company Number: DE-TEVA-213950ISR

PATIENT
  Age: 72 Year
  Sex: Female
  Weight: 70 kg

DRUGS (2)
  1. BISOPROLOL FUMARATE AND HYDROCHLOROTHIAZIDE [Suspect]
     Indication: HYPERTENSION
     Dosage: BISOPROLOL 10MG + HCT 25MG
     Route: 048
     Dates: start: 20090401, end: 20090801
  2. DICLOFENAC SODIUM [Suspect]
     Indication: OVERLAP SYNDROME
     Route: 054
     Dates: start: 20030601, end: 20090801

REACTIONS (1)
  - HENOCH-SCHONLEIN PURPURA [None]
